FAERS Safety Report 15618055 (Version 1)
Quarter: 2018Q4

REPORT INFORMATION
  Report Type: Spontaneous
  Country: US (occurrence: US)
  Receive Date: 20181114
  Receipt Date: 20181114
  Transmission Date: 20190205
  Serious: No
  Sender: FDA-Public Use
  Company Number: US-PFIZER INC-2018451668

PATIENT
  Age: 73 Year
  Sex: Male
  Weight: 99.79 kg

DRUGS (2)
  1. DIGOXIN. [Concomitant]
     Active Substance: DIGOXIN
     Indication: HEART RATE IRREGULAR
     Dosage: 125 MCG TABLETS ONCE DAILY
     Route: 048
  2. LYRICA [Suspect]
     Active Substance: PREGABALIN
     Indication: NEURALGIA
     Dosage: 2 DF, 3X/DAY (2 CAPSULES THREE TIMES A DAY)
     Route: 048

REACTIONS (1)
  - Drug effect incomplete [Recovered/Resolved]
